FAERS Safety Report 9386631 (Version 2)
Quarter: 2013Q3

REPORT INFORMATION
  Report Type: Report from Study
  Country: IN (occurrence: IN)
  Receive Date: 20130708
  Receipt Date: 20130729
  Transmission Date: 20140515
  Serious: Yes (Hospitalization, Other)
  Sender: FDA-Public Use
  Company Number: PHHY2013IN066370

PATIENT
  Age: 31 Year
  Sex: Male
  Weight: 60 kg

DRUGS (2)
  1. TASIGNA [Suspect]
     Indication: CHRONIC MYELOID LEUKAEMIA
     Dosage: 300 MG, BID
     Route: 048
     Dates: start: 20130218
  2. LOOZ [Concomitant]
     Indication: CONSTIPATION

REACTIONS (6)
  - VIIth nerve paralysis [Recovering/Resolving]
  - Vision blurred [Recovering/Resolving]
  - Sepsis [Unknown]
  - Haemoglobin decreased [Unknown]
  - Pyrexia [Recovered/Resolved]
  - Constipation [Unknown]
